FAERS Safety Report 8003160-9 (Version None)
Quarter: 2011Q4

REPORT INFORMATION
  Report Type: 
  Country: None (occurrence: None)
  Receive Date: 20111222
  Receipt Date: 20111213
  Transmission Date: 20120403
  Serious: Yes (Hospitalization)
  Sender: FDA-Public Use
  Company Number: PHHY2011JP109274

PATIENT
  Age: 49 Year
  Sex: Female

DRUGS (1)
  1. CARBAMAZEPINE [Suspect]
     Indication: EPILEPSY
     Dosage: 400 MG, DAILY

REACTIONS (8)
  - ORGANISING PNEUMONIA [None]
  - RALES [None]
  - HYPOGAMMAGLOBULINAEMIA [None]
  - DYSPNOEA EXERTIONAL [None]
  - PRODUCTIVE COUGH [None]
  - OBSTRUCTIVE AIRWAYS DISORDER [None]
  - BODY TEMPERATURE INCREASED [None]
  - PULMONARY FIBROSIS [None]
